FAERS Safety Report 11404770 (Version 3)
Quarter: 2015Q3

REPORT INFORMATION
  Report Type: Report from Study
  Country: AU (occurrence: AU)
  Receive Date: 20150821
  Receipt Date: 20150928
  Transmission Date: 20151125
  Serious: Yes (Hospitalization, Disabling, Other)
  Sender: FDA-Public Use
  Company Number: PHHO2014AU002053

PATIENT
  Age: 31 Year
  Sex: Female
  Weight: 109 kg

DRUGS (4)
  1. AIN457 [Suspect]
     Active Substance: SECUKINUMAB
     Indication: PSORIATIC ARTHROPATHY
     Dosage: 150 MG, UNK
     Route: 058
     Dates: start: 20130813, end: 20150720
  2. TOPIRAMATE. [Concomitant]
     Active Substance: TOPIRAMATE
     Indication: MIGRAINE
     Dosage: 15 MG, QD
     Route: 048
     Dates: start: 20140707
  3. CLARATYNE [Concomitant]
     Active Substance: LORATADINE
     Indication: RHINITIS ALLERGIC
     Dosage: 10 MG, UNK
     Route: 065
  4. TOPIRAMATE. [Concomitant]
     Active Substance: TOPIRAMATE
     Dosage: 25 MG, BID
     Route: 048
     Dates: start: 20150804

REACTIONS (4)
  - Vision blurred [Not Recovered/Not Resolved]
  - Headache [Not Recovered/Not Resolved]
  - Deafness neurosensory [Not Recovered/Not Resolved]
  - Deafness neurosensory [Recovered/Resolved with Sequelae]

NARRATIVE: CASE EVENT DATE: 20140118
